FAERS Safety Report 16853702 (Version 1)
Quarter: 2019Q4

REPORT INFORMATION
  Report Type: Spontaneous
  Country: US (occurrence: US)
  Receive Date: 20190925
  Receipt Date: 20190925
  Transmission Date: 20200122
  Serious: Yes (Hospitalization)
  Sender: FDA-Public Use
  Company Number: None

PATIENT
  Age: 79 Year
  Sex: Female

DRUGS (2)
  1. FUROSEMIDE. [Suspect]
     Active Substance: FUROSEMIDE
  2. METOLAZONE. [Suspect]
     Active Substance: METOLAZONE

REACTIONS (4)
  - Hypercalcaemia [None]
  - Hypokalaemia [None]
  - Scleroderma [None]
  - Neoplasm malignant [None]

NARRATIVE: CASE EVENT DATE: 20190909
